FAERS Safety Report 8566927 (Version 5)
Quarter: 2012Q4

REPORT INFORMATION
  Report Type: 
  Country: US (occurrence: US)
  Receive Date: 20120517
  Receipt Date: 20121101
  Transmission Date: 20130627
  Serious: Yes (Hospitalization, Other)
  Sender: FDA-Public Use
  Company Number: US-ASTRAZENECA-2012SE29900

PATIENT
  Age: 57 Year
  Sex: Male
  Weight: 123.4 kg

DRUGS (9)
  1. ATENOLOL [Suspect]
     Route: 048
  2. NEXIUM [Suspect]
     Route: 048
  3. LISINOPRIL [Suspect]
     Route: 048
  4. LISINOPRIL [Suspect]
     Route: 048
     Dates: start: 20120127
  5. TRAMADOL [Suspect]
     Route: 048
  6. FLEXERIL [Suspect]
     Route: 048
  7. GABAPENTIN [Suspect]
     Route: 048
  8. SPIRONOLACTONE [Suspect]
     Route: 048
  9. SPIRONOLACTONE [Suspect]
     Route: 048
     Dates: start: 20120216

REACTIONS (27)
  - Hepatitis C [Unknown]
  - Adverse event [Unknown]
  - Bone marrow toxicity [Unknown]
  - Alcohol poisoning [Unknown]
  - Portal hypertension [Unknown]
  - Pancytopenia [Unknown]
  - Cirrhosis alcoholic [Unknown]
  - Osteoarthritis [Unknown]
  - Varices oesophageal [Unknown]
  - Obesity [Unknown]
  - Alcohol abuse [Unknown]
  - Sleep apnoea syndrome [Unknown]
  - Nicotine dependence [Unknown]
  - Diverticulum [Unknown]
  - Cholelithiasis [Unknown]
  - Erectile dysfunction [Unknown]
  - Gastrooesophageal reflux disease [Unknown]
  - Hypertension [Unknown]
  - Weight increased [Unknown]
  - Thirst [Unknown]
  - Liver disorder [Unknown]
  - Decreased appetite [Unknown]
  - Arthralgia [Unknown]
  - Hypoaesthesia [Unknown]
  - Blood glucose increased [Unknown]
  - Oedema peripheral [Unknown]
  - Venous insufficiency [Unknown]
